FAERS Safety Report 8011297-3 (Version None)
Quarter: 2011Q4

REPORT INFORMATION
  Report Type: 
  Country: None (occurrence: None)
  Receive Date: 20111228
  Receipt Date: 20111221
  Transmission Date: 20120403
  Serious: Yes (Other)
  Sender: FDA-Public Use
  Company Number: FR-JNJFOC-20111209783

PATIENT
  Age: 68 Year
  Sex: Female

DRUGS (8)
  1. XARELTO [Suspect]
     Route: 048
     Dates: start: 20111116, end: 20111121
  2. CANDESARTAN CILEXETIL [Concomitant]
  3. XARELTO [Suspect]
     Route: 048
     Dates: start: 20111001
  4. HEPARIN [Concomitant]
     Dates: start: 20111101
  5. ACETAMINOPHEN [Concomitant]
  6. XARELTO [Suspect]
     Indication: HIP ARTHROPLASTY
     Route: 048
     Dates: start: 20111116, end: 20111121
  7. XARELTO [Suspect]
     Route: 048
     Dates: start: 20111001
  8. LEVOTHYROXINE SODIUM [Concomitant]

REACTIONS (3)
  - VIITH NERVE PARALYSIS [None]
  - SYNCOPE [None]
  - MUSCLE CONTRACTIONS INVOLUNTARY [None]
